FAERS Safety Report 19645287 (Version 6)
Quarter: 2023Q4

REPORT INFORMATION
  Report Type: Other
  Country: IT (occurrence: None)
  Receive Date: 20210802
  Receipt Date: 20231023
  Transmission Date: 20240110
  Serious: Yes (Death, Hospitalization, Other)
  Sender: FDA-Public Use
  Company Number: IT-ROCHE-2867439

PATIENT
  Age: 69 Year
  Sex: Female
  Weight: 109 kg

DRUGS (10)
  1. GAVRETO [Suspect]
     Active Substance: PRALSETINIB
     Indication: Non-small cell lung cancer
     Dosage: ON 31/MAY/2021 PATIENT RECEIVED THE MOST RECENT DOSE PRIOR TO AE
     Route: 048
     Dates: start: 20210126
  2. GAVRETO [Suspect]
     Active Substance: PRALSETINIB
     Dosage: ON 05/JUL/2021, TREATMENT WAS RESTARTED, 300 MG/DAY
     Route: 048
     Dates: start: 20210705
  3. FOLIC ACID [Concomitant]
     Active Substance: FOLIC ACID
     Route: 048
  4. ARIXTRA [Concomitant]
     Active Substance: FONDAPARINUX SODIUM
     Route: 058
  5. PREDNISONE [Concomitant]
     Active Substance: PREDNISONE
     Route: 048
  6. LASIX [Concomitant]
     Active Substance: FUROSEMIDE
     Route: 048
  7. XANAX [Concomitant]
     Active Substance: ALPRAZOLAM
     Route: 048
  8. FENTANYL [Concomitant]
     Active Substance: FENTANYL\FENTANYL CITRATE
     Dosage: 37 MCG
  9. BENSERAZIDE HYDROCHLORIDE\LEVODOPA [Concomitant]
     Active Substance: BENSERAZIDE HYDROCHLORIDE\LEVODOPA
     Indication: Parkinson^s disease
     Dosage: 200/50
     Route: 048
     Dates: start: 2021
  10. DOXYCYCLINE [Concomitant]
     Active Substance: DOXYCYCLINE
     Dates: start: 2021

REACTIONS (5)
  - Erythema multiforme [Recovering/Resolving]
  - Herpes zoster reactivation [Recovered/Resolved]
  - Anaemia [Recovered/Resolved]
  - Haemorrhage [Unknown]
  - Sudden death [Fatal]

NARRATIVE: CASE EVENT DATE: 20210330
